FAERS Safety Report 9358917 (Version 2)
Quarter: 2013Q2

REPORT INFORMATION
  Report Type: Spontaneous
  Country: US (occurrence: US)
  Receive Date: 20130620
  Receipt Date: 20130625
  Transmission Date: 20140414
  Serious: Yes (Other)
  Sender: FDA-Public Use
  Company Number: US-TEVA-413940USA

PATIENT
  Age: 55 Year
  Sex: Female

DRUGS (1)
  1. COPAXONE [Suspect]
     Dates: start: 20111013

REACTIONS (6)
  - Throat tightness [Unknown]
  - Swelling face [Unknown]
  - Dyspnoea [Unknown]
  - Urticaria [Unknown]
  - Injection site swelling [Unknown]
  - Injection site urticaria [Unknown]
